FAERS Safety Report 6690596-1 (Version None)
Quarter: 2010Q2

REPORT INFORMATION
  Report Type: 
  Country: None (occurrence: None)
  Receive Date: 20100421
  Receipt Date: 20100412
  Transmission Date: 20101027
  Serious: Yes (Other)
  Sender: FDA-Public Use
  Company Number: B0646787A

PATIENT
  Age: 72 Year
  Sex: Female
  Weight: 96.4 kg

DRUGS (8)
  1. ROSIGLITAZONE [Suspect]
     Dosage: 4MG PER DAY
     Route: 065
     Dates: start: 20050301
  2. ROSIGLITAZONE [Suspect]
     Dosage: 8MG PER DAY
     Route: 065
     Dates: start: 20050601
  3. SIMVASTATIN [Suspect]
     Route: 048
  4. PIOGLITAZONE [Suspect]
     Dosage: 30MG PER DAY
     Route: 065
     Dates: start: 20070201, end: 20070501
  5. ATORVASTATIN [Suspect]
     Route: 065
  6. FENOFIBRATE [Suspect]
     Dosage: 160MG PER DAY
     Route: 065
     Dates: start: 20030501
  7. ROSUVASTATIN [Concomitant]
  8. METFORMIN [Concomitant]
     Dosage: 1.5G PER DAY

REACTIONS (2)
  - HIGH DENSITY LIPOPROTEIN DECREASED [None]
  - MYALGIA [None]
